FAERS Safety Report 7429448-8 (Version None)
Quarter: 2011Q2

REPORT INFORMATION
  Report Type: 
  Country: None (occurrence: None)
  Receive Date: 20110419
  Receipt Date: 20110419
  Transmission Date: 20111010
  Serious: Yes (Other)
  Sender: FDA-Public Use
  Company Number: None

PATIENT
  Age: 25 Year
  Sex: Male
  Weight: 74.8435 kg

DRUGS (1)
  1. SUBOXONE [Suspect]
     Indication: DRUG DEPENDENCE
     Dosage: 8/2 MG QD SL
     Route: 060
     Dates: start: 20110328, end: 20110418

REACTIONS (6)
  - DIZZINESS [None]
  - VISION BLURRED [None]
  - SKIN BURNING SENSATION [None]
  - HYPOAESTHESIA ORAL [None]
  - HEADACHE [None]
  - SWOLLEN TONGUE [None]
